FAERS Safety Report 11273605 (Version 1)
Quarter: 2015Q3

REPORT INFORMATION
  Report Type: Spontaneous
  Country: FR (occurrence: FR)
  Receive Date: 20150715
  Receipt Date: 20150715
  Transmission Date: 20151125
  Serious: Yes (Hospitalization)
  Sender: FDA-Public Use
  Company Number: FR-009507513-1507FRA004194

PATIENT
  Age: 75 Year
  Sex: Male

DRUGS (5)
  1. PRITOR [Suspect]
     Active Substance: TELMISARTAN
     Indication: HYPERTENSION
     Dosage: UNK
     Route: 048
     Dates: end: 20150515
  2. GLICLAZIDE [Concomitant]
     Active Substance: GLICLAZIDE
  3. PREVISCAN [Concomitant]
     Active Substance: FLUINDIONE
     Dosage: UNK
     Dates: end: 201505
  4. INNOHEP [Suspect]
     Active Substance: TINZAPARIN SODIUM
     Indication: ATRIAL FIBRILLATION
     Dosage: 14000 IU, QD (0.7ML, DAILY)
     Route: 058
     Dates: start: 20150513, end: 20150516
  5. ZOCOR [Suspect]
     Active Substance: SIMVASTATIN
     Indication: ATHEROSCLEROSIS PROPHYLAXIS
     Dosage: FORMULATION: SCORED COATED TABLET
     Route: 048
     Dates: end: 20150515

REACTIONS (3)
  - Renal failure [Recovered/Resolved]
  - Renal haemorrhage [Recovered/Resolved with Sequelae]
  - Anaemia [Recovering/Resolving]

NARRATIVE: CASE EVENT DATE: 20150515
